FAERS Safety Report 21564046 (Version 1)
Quarter: 2022Q4

REPORT INFORMATION
  Report Type: Report from Study
  Country: GB (occurrence: GB)
  Receive Date: 20221108
  Receipt Date: 20221108
  Transmission Date: 20230113
  Serious: Yes (Other)
  Sender: FDA-Public Use
  Company Number: GB-ABBVIE-4189585

PATIENT
  Age: 62 Year
  Sex: Female

DRUGS (6)
  1. CARBIDOPA\LEVODOPA [Suspect]
     Active Substance: CARBIDOPA\LEVODOPA
     Indication: Parkinson^s disease
     Dosage: DUODOPA 20MG/5MG; MD: 10.0MLS, CR: 2.6MLS, ED: 1.4MLS
     Route: 050
     Dates: start: 20220810
  2. CARBIDOPA\LEVODOPA [Suspect]
     Active Substance: CARBIDOPA\LEVODOPA
  3. Co-careldopa CR [Concomitant]
     Indication: Product used for unknown indication
     Dosage: 50/200MGS X 1
  4. Rotigotine patch [Concomitant]
     Indication: Parkinson^s disease
     Route: 061
     Dates: start: 20220811
  5. OPICAPONE [Concomitant]
     Active Substance: OPICAPONE
     Indication: Product used for unknown indication
  6. Apo pen [Concomitant]
     Indication: Parkinson^s disease

REACTIONS (5)
  - Intestinal perforation [Recovering/Resolving]
  - Anxiety [Unknown]
  - Stress [Unknown]
  - Abdominal pain [Unknown]
  - Vomiting [Unknown]

NARRATIVE: CASE EVENT DATE: 20220101
